FAERS Safety Report 7077086-1 (Version None)
Quarter: 2010Q4

REPORT INFORMATION
  Report Type: 
  Country: None (occurrence: None)
  Receive Date: 20101101
  Receipt Date: 20101019
  Transmission Date: 20110411
  Serious: Yes (Hospitalization, Other)
  Sender: FDA-Public Use
  Company Number: PHHY2010CA44962

PATIENT
  Sex: Female

DRUGS (2)
  1. SANDOSTATIN LAR [Suspect]
     Indication: CARCINOID TUMOUR OF THE SMALL BOWEL
     Dosage: 20 MG, EVERY 4 WEEKS
     Route: 030
     Dates: start: 20100608
  2. SANDOSTATIN LAR [Suspect]
     Dosage: 20 MG EVERY 4 WEEKS
     Route: 030
     Dates: start: 20100923

REACTIONS (4)
  - GALLBLADDER OPERATION [None]
  - HEPATECTOMY [None]
  - INTESTINAL RESECTION [None]
  - WEIGHT INCREASED [None]
